FAERS Safety Report 7998059 (Version 2)
Quarter: 2013Q1

REPORT INFORMATION
  Report Type: Spontaneous
  Country: ES (occurrence: None)
  Receive Date: 20110603
  Receipt Date: 20121116
  Transmission Date: 20140127
  Serious: Yes (Other)
  Sender: FDA-Public Use
  Company Number: 933719

PATIENT
  Age: 65 Year
  Sex: Male

DRUGS (1)
  1. PIPERACILLIN AND TAZOBACTAM [Suspect]
     Indication: INFECTIVE TENOSYNOVITIS

REACTIONS (7)
  - Urticaria [None]
  - Pyrexia [None]
  - Rash erythematous [None]
  - Chills [None]
  - Rash generalised [None]
  - Drug hypersensitivity [None]
  - Pruritus [None]
